FAERS Safety Report 5918092-7 (Version None)
Quarter: 2008Q4

REPORT INFORMATION
  Report Type: 
  Country: None (occurrence: None)
  Receive Date: 20081014
  Receipt Date: 20081002
  Transmission Date: 20090506
  Serious: Yes (Other)
  Sender: FDA-Public Use
  Company Number: BR-PFIZER INC-2008084643

PATIENT
  Sex: Female

DRUGS (2)
  1. CHANTIX [Suspect]
     Indication: SMOKING CESSATION THERAPY
     Route: 048
     Dates: start: 20080101, end: 20080901
  2. CONTRACEPTIVE, UNSPECIFIED [Concomitant]

REACTIONS (3)
  - CRYING [None]
  - DEPRESSION [None]
  - SUICIDAL IDEATION [None]
